FAERS Safety Report 7260597-3 (Version None)
Quarter: 2011Q1

REPORT INFORMATION
  Report Type: 
  Country: None (occurrence: None)
  Receive Date: 20110130
  Receipt Date: 20101110
  Transmission Date: 20110831
  Serious: No
  Sender: FDA-Public Use
  Company Number: US-ABBOTT-10P-163-0684621-00

PATIENT
  Age: 58 Year
  Sex: Male

DRUGS (15)
  1. HYDROCHLOROTHIAZIDE [Concomitant]
     Indication: HYPERTENSION
  2. FOLIC ACID [Concomitant]
     Indication: VITAMIN SUPPLEMENTATION
     Dosage: DAILY
  3. CALCIUM [Concomitant]
     Indication: MINERAL SUPPLEMENTATION
     Dosage: DAILY
  4. TURMERIC [Concomitant]
     Indication: PHYTOTHERAPY
     Dosage: DAILY
  5. ASPIRIN [Concomitant]
     Indication: CARDIAC DISORDER
  6. COQ10 [Concomitant]
     Indication: MEDICAL DIET
     Dosage: DAILY
  7. ASCORBIC ACID [Concomitant]
     Indication: VITAMIN SUPPLEMENTATION
     Dosage: DAILY
  8. HUMIRA [Suspect]
     Indication: PSORIATIC ARTHROPATHY
     Dates: start: 20091001
  9. ATENOLOL [Concomitant]
     Indication: HYPERTENSION
     Dosage: DAILY
  10. CENTRUM SILVER [Concomitant]
     Indication: VITAMIN SUPPLEMENTATION
     Dosage: DAILY
  11. FISH OIL [Concomitant]
     Indication: MEDICAL DIET
     Dosage: DAILY
  12. MAGNESIUM [Concomitant]
     Indication: MINERAL SUPPLEMENTATION
     Dosage: DAILY
  13. BOAT LOAD OF VITAMINS [Concomitant]
     Indication: VITAMIN SUPPLEMENTATION
  14. IRON [Concomitant]
     Indication: MINERAL SUPPLEMENTATION
     Dosage: DAILY
  15. GLUCOSAMINE + CHONDROITIN [Concomitant]
     Indication: SUPPLEMENTATION THERAPY
     Dosage: 1500/1200 MG DAILY

REACTIONS (5)
  - NAUSEA [None]
  - HYPOAESTHESIA FACIAL [None]
  - FEELING ABNORMAL [None]
  - HYPOAESTHESIA [None]
  - PAIN [None]
